FAERS Safety Report 6215628-6 (Version None)
Quarter: 2009Q2

REPORT INFORMATION
  Report Type: 
  Country: None (occurrence: None)
  Receive Date: 20090605
  Receipt Date: 20090527
  Transmission Date: 20091009
  Serious: Yes (Other)
  Sender: FDA-Public Use
  Company Number: JP-JNJFOC-20090305967

PATIENT
  Sex: Female
  Weight: 50 kg

DRUGS (12)
  1. REMICADE [Suspect]
     Route: 042
  2. REMICADE [Suspect]
     Route: 042
  3. REMICADE [Suspect]
     Route: 042
  4. REMICADE [Suspect]
     Route: 042
  5. REMICADE [Suspect]
     Indication: CROHN'S DISEASE
     Route: 042
  6. EPINEPHRINE [Suspect]
     Indication: DRUG USE FOR UNKNOWN INDICATION
  7. TALION [Concomitant]
     Indication: PROPHYLAXIS
     Route: 048
  8. GASTER [Concomitant]
     Indication: PROPHYLAXIS
     Route: 048
  9. GASTER [Concomitant]
     Indication: PEPTIC ULCER
     Route: 048
  10. PREDONINE [Concomitant]
     Indication: CROHN'S DISEASE
     Route: 048
  11. PENTASA [Concomitant]
     Indication: CROHN'S DISEASE
     Route: 048
  12. FLAGYL [Concomitant]
     Indication: CROHN'S DISEASE
     Route: 048

REACTIONS (6)
  - CYANOSIS [None]
  - DRUG SPECIFIC ANTIBODY PRESENT [None]
  - INFUSION RELATED REACTION [None]
  - OXYGEN SATURATION DECREASED [None]
  - RASH [None]
  - TACHYCARDIA [None]
